FAERS Safety Report 6449629-X (Version None)
Quarter: 2009Q4

REPORT INFORMATION
  Report Type: 
  Country: None (occurrence: None)
  Receive Date: 20091120
  Receipt Date: 20091109
  Transmission Date: 20100525
  Serious: Yes (Other)
  Sender: FDA-Public Use
  Company Number: JP-PFIZER INC-2009296045

PATIENT
  Age: 59 Year
  Sex: Male

DRUGS (1)
  1. GABAPEN [Suspect]
     Indication: CANCER PAIN
     Dosage: 200 MG AND 300 MG
     Dates: start: 20091022, end: 20091105

REACTIONS (1)
  - BLOOD CREATINE PHOSPHOKINASE INCREASED [None]
